FAERS Safety Report 10196299 (Version 1)
Quarter: 2014Q2

REPORT INFORMATION
  Report Type: Spontaneous
  Country: US (occurrence: None)
  Receive Date: 20140522
  Receipt Date: 20140522
  Transmission Date: 20141212
  Serious: Yes (Hospitalization)
  Sender: FDA-Public Use
  Company Number: 2014P1004151

PATIENT
  Age: 62 Year
  Sex: Female

DRUGS (1)
  1. INFUMORPH [Suspect]
     Indication: PAIN
     Route: 037

REACTIONS (6)
  - Incision site haemorrhage [None]
  - Incision site infection [None]
  - Purulent discharge [None]
  - Wound dehiscence [None]
  - Staphylococcus test positive [None]
  - Pseudomonas test positive [None]
